FAERS Safety Report 14090923 (Version 1)
Quarter: 2017Q4

REPORT INFORMATION
  Report Type: Report from Study
  Country: None (occurrence: US)
  Receive Date: 20171016
  Receipt Date: 20171016
  Transmission Date: 20180321
  Serious: Yes (Other)
  Sender: FDA-Public Use
  Company Number: US-ABBVIE-17K-163-1882263-00

PATIENT
  Age: 19 Year
  Sex: Male

DRUGS (4)
  1. HUMIRA [Suspect]
     Active Substance: ADALIMUMAB
     Route: 058
     Dates: start: 20170417
  2. HUMIRA [Suspect]
     Active Substance: ADALIMUMAB
     Indication: CROHN^S DISEASE
     Dosage: DAY 1
     Route: 058
     Dates: start: 20170116, end: 20170116
  3. HUMIRA [Suspect]
     Active Substance: ADALIMUMAB
     Route: 058
     Dates: start: 20170213, end: 20170320
  4. HUMIRA [Suspect]
     Active Substance: ADALIMUMAB
     Dosage: DAY 15
     Route: 058
     Dates: start: 20170130, end: 20170130

REACTIONS (20)
  - Decreased appetite [Recovering/Resolving]
  - Dizziness [Recovered/Resolved]
  - Vision blurred [Recovering/Resolving]
  - Constipation [Unknown]
  - Gait inability [Unknown]
  - Migraine [Unknown]
  - Headache [Recovered/Resolved]
  - Malaise [Recovering/Resolving]
  - Injection site warmth [Recovered/Resolved]
  - Lumbar puncture [Unknown]
  - Head discomfort [Recovered/Resolved]
  - Depressed mood [Recovering/Resolving]
  - Diarrhoea [Recovering/Resolving]
  - Injection site bruising [Unknown]
  - Abdominal pain [Recovering/Resolving]
  - Nausea [Recovering/Resolving]
  - Injection site erythema [Recovered/Resolved]
  - Pyrexia [Recovered/Resolved]
  - Vomiting [Recovering/Resolving]
  - Drug ineffective [Unknown]

NARRATIVE: CASE EVENT DATE: 2017
